FAERS Safety Report 17408161 (Version 3)
Quarter: 2021Q2

REPORT INFORMATION
  Report Type: Spontaneous
  Country: BE (occurrence: BE)
  Receive Date: 20200212
  Receipt Date: 20210517
  Transmission Date: 20210716
  Serious: Yes (Hospitalization, Disabling, Other)
  Sender: FDA-Public Use
  Company Number: BE-009507513-2002BEL004191

PATIENT
  Age: 68 Year
  Sex: Male
  Weight: 65.5 kg

DRUGS (5)
  1. SPIRIVA [Concomitant]
     Active Substance: TIOTROPIUM BROMIDE MONOHYDRATE
     Dosage: UNK
  2. KEYTRUDA [Suspect]
     Active Substance: PEMBROLIZUMAB
     Indication: LUNG ADENOCARCINOMA
     Dosage: 200 MILLIGRAM, Q3W (27 CYCLES)
     Route: 042
     Dates: start: 20180208, end: 20190808
  3. SERETIDE [Concomitant]
     Active Substance: FLUTICASONE PROPIONATE\SALMETEROL XINAFOATE
  4. ASAFLOW [Concomitant]
     Active Substance: ASPIRIN
     Dosage: UNK
  5. KEYTRUDA [Suspect]
     Active Substance: PEMBROLIZUMAB
     Indication: NON-SMALL CELL LUNG CANCER
     Dosage: 200 MILLIGRAM, Q3W
     Route: 042
     Dates: start: 20191204, end: 20191226

REACTIONS (9)
  - Adrenal insufficiency [Recovering/Resolving]
  - Immune-mediated hypophysitis [Unknown]
  - Corneal perforation [Recovered/Resolved]
  - Adrenal insufficiency [Unknown]
  - Infection [Unknown]
  - Immune-mediated arthritis [Recovered/Resolved]
  - Corneal perforation [Recovered/Resolved]
  - Immune-mediated arthritis [Unknown]
  - Immune-mediated hypophysitis [Unknown]

NARRATIVE: CASE EVENT DATE: 2019
